FAERS Safety Report 20360810 (Version 1)
Quarter: 2022Q1

REPORT INFORMATION
  Report Type: Spontaneous
  Country: US (occurrence: US)
  Receive Date: 20220121
  Receipt Date: 20220121
  Transmission Date: 20220423
  Serious: No
  Sender: FDA-Public Use
  Company Number: US-GLAXOSMITHKLINE-USCH2022002479

PATIENT
  Age: 51 Year
  Sex: Male

DRUGS (1)
  1. ADVIL DUAL ACTION WITH ACETAMINOPHEN [Suspect]
     Active Substance: ACETAMINOPHEN\IBUPROFEN
     Indication: Pain
     Dosage: 1 DF
     Dates: start: 20220117

REACTIONS (3)
  - Headache [Unknown]
  - Condition aggravated [Unknown]
  - Dizziness [Unknown]

NARRATIVE: CASE EVENT DATE: 20220118
